FAERS Safety Report 13998267 (Version 1)
Quarter: 2017Q3

REPORT INFORMATION
  Report Type: Spontaneous
  Country: US (occurrence: US)
  Receive Date: 20170921
  Receipt Date: 20170921
  Transmission Date: 20171128
  Serious: Yes (Death, Congenital Anomaly, Other)
  Sender: FDA-Public Use
  Company Number: PHEH2017US030501

PATIENT

DRUGS (1)
  1. ZOFRAN [Suspect]
     Active Substance: ONDANSETRON HYDROCHLORIDE
     Indication: FOETAL EXPOSURE DURING PREGNANCY
     Route: 064

REACTIONS (8)
  - Cardiac arrest [Unknown]
  - Injury [Unknown]
  - Foetal exposure during pregnancy [Unknown]
  - Death [Fatal]
  - Double outlet right ventricle [Unknown]
  - Anomalous pulmonary venous connection [Unknown]
  - Atrioventricular septal defect [Unknown]
  - Tricuspid valve disease [Unknown]
